FAERS Safety Report 13386218 (Version 1)
Quarter: 2017Q1

REPORT INFORMATION
  Report Type: Spontaneous
  Country: IT (occurrence: IT)
  Receive Date: 20170330
  Receipt Date: 20170330
  Transmission Date: 20170429
  Serious: Yes (Hospitalization, Other)
  Sender: FDA-Public Use
  Company Number: IT-AUROBINDO-AUR-APL-2017-31452

PATIENT
  Age: 40 Year
  Sex: Female

DRUGS (2)
  1. SERTRALINE [Suspect]
     Active Substance: SERTRALINE HYDROCHLORIDE
     Indication: SUICIDE ATTEMPT
     Dosage: 20 DF, TOTAL
     Route: 065
     Dates: start: 20150922, end: 20150922
  2. DIAZEPAM. [Suspect]
     Active Substance: DIAZEPAM
     Indication: SUICIDE ATTEMPT
     Dosage: 40 ML, TOTAL
     Route: 048
     Dates: start: 20150922, end: 20150922

REACTIONS (4)
  - Sopor [Recovering/Resolving]
  - Apnoea [Recovering/Resolving]
  - Drug abuse [Recovering/Resolving]
  - Miosis [Recovering/Resolving]

NARRATIVE: CASE EVENT DATE: 20150922
